FAERS Safety Report 10470423 (Version 1)
Quarter: 2014Q3

REPORT INFORMATION
  Report Type: Other
  Country: GB (occurrence: GB)
  Receive Date: 20140923
  Receipt Date: 20140923
  Transmission Date: 20150326
  Serious: Yes (Disabling)
  Sender: FDA-Public Use
  Company Number: GB-MYLANLABS-2014M1004169

PATIENT

DRUGS (1)
  1. PAROXETINE [Suspect]
     Active Substance: PAROXETINE\PAROXETINE HYDROCHLORIDE
     Indication: DIZZINESS
     Dosage: 20 MG, UNK
     Route: 048
     Dates: start: 200208, end: 200708

REACTIONS (6)
  - Musculoskeletal discomfort [Recovered/Resolved]
  - Dissociation [Unknown]
  - Paraesthesia [Recovered/Resolved]
  - Emotional disorder [Recovered/Resolved with Sequelae]
  - Paraesthesia [Not Recovered/Not Resolved]
  - Drug withdrawal syndrome [Unknown]

NARRATIVE: CASE EVENT DATE: 2004
